FAERS Safety Report 9818939 (Version 1)
Quarter: 2014Q1

REPORT INFORMATION
  Report Type: Spontaneous
  Country: US (occurrence: US)
  Receive Date: 20140115
  Receipt Date: 20140115
  Transmission Date: 20141002
  Serious: Yes (Death)
  Sender: FDA-Public Use
  Company Number: US-PFIZER INC-2014007257

PATIENT
  Age: 42 Year
  Sex: Male

DRUGS (2)
  1. MORPHINE SULFATE [Suspect]
     Route: 065
  2. CEFTRIAXONE [Suspect]
     Route: 065

REACTIONS (1)
  - Accidental exposure to product [Fatal]
